FAERS Safety Report 13049881 (Version 1)
Quarter: 2016Q4

REPORT INFORMATION
  Report Type: Spontaneous
  Country: DE (occurrence: DE)
  Receive Date: 20161221
  Receipt Date: 20161221
  Transmission Date: 20170207
  Serious: Yes (Other)
  Sender: FDA-Public Use
  Company Number: DE-ABBVIE-16P-062-1817744-00

PATIENT
  Age: 84 Year
  Weight: 39.5 kg

DRUGS (1)
  1. CREON [Suspect]
     Active Substance: PANCRELIPASE AMYLASE\PANCRELIPASE LIPASE\PANCRELIPASE PROTEASE
     Indication: PRODUCT USED FOR UNKNOWN INDICATION
     Route: 065

REACTIONS (6)
  - Rhinorrhoea [Unknown]
  - Oropharyngeal pain [Unknown]
  - Weight decreased [Unknown]
  - Gastrointestinal pain [Unknown]
  - Cough [Unknown]
  - Bronchospasm [Unknown]
